FAERS Safety Report 7320058-X (Version None)
Quarter: 2011Q1

REPORT INFORMATION
  Report Type: 
  Country: None (occurrence: None)
  Receive Date: 20110228
  Receipt Date: 20110218
  Transmission Date: 20110831
  Serious: Yes (Other)
  Sender: FDA-Public Use
  Company Number: FR-PFIZER INC-2011036074

PATIENT

DRUGS (1)
  1. REVATIO [Suspect]

REACTIONS (1)
  - ANAEMIA [None]
